FAERS Safety Report 7553815-5 (Version None)
Quarter: 2011Q2

REPORT INFORMATION
  Report Type: 
  Country: None (occurrence: None)
  Receive Date: 20110614
  Receipt Date: 20110614
  Transmission Date: 20111010
  Serious: Yes (Other)
  Sender: FDA-Public Use
  Company Number: None

PATIENT
  Age: 26 Year
  Sex: Female
  Weight: 273 kg

DRUGS (1)
  1. NITROFURANTOIN [Suspect]
     Indication: URINARY TRACT INFECTION
     Dosage: 1 CAPSULE 1 A DAY PO
     Route: 048
     Dates: start: 20110601, end: 20110605

REACTIONS (16)
  - OROPHARYNGEAL PAIN [None]
  - THROAT IRRITATION [None]
  - JOINT SWELLING [None]
  - PRURITUS [None]
  - ARTHRALGIA [None]
  - EYE SWELLING [None]
  - NAUSEA [None]
  - URTICARIA [None]
  - PAIN [None]
  - DYSPNOEA [None]
  - SWELLING [None]
  - OEDEMA PERIPHERAL [None]
  - SWELLING FACE [None]
  - VOMITING [None]
  - PHARYNGEAL OEDEMA [None]
  - CHEST DISCOMFORT [None]
